FAERS Safety Report 18376888 (Version 1)
Quarter: 2020Q4

REPORT INFORMATION
  Report Type: Spontaneous
  Country: CN (occurrence: CN)
  Receive Date: 20201013
  Receipt Date: 20201013
  Transmission Date: 20210114
  Serious: Yes (Other)
  Sender: FDA-Public Use
  Company Number: CN-BAUSCH-BL-2020-028445

PATIENT
  Age: 42 Year
  Sex: Female

DRUGS (3)
  1. 5-FLUOROURACIL [Suspect]
     Active Substance: FLUOROURACIL
     Indication: CHORIOCARCINOMA
     Dosage: AT INTERVALS OF 4 WEEKS
     Route: 065
  2. ACTINOMYCIN D [Suspect]
     Active Substance: DACTINOMYCIN
     Indication: CHORIOCARCINOMA
     Dosage: AT INTERVALS OF 4 WEEKS
     Route: 065
  3. VINORELBINE [Suspect]
     Active Substance: VINORELBINE TARTRATE
     Indication: CHORIOCARCINOMA
     Dosage: AT INTERVALS OF 4 WEEKS
     Route: 065

REACTIONS (3)
  - Gastrointestinal disorder [Recovering/Resolving]
  - Myelosuppression [Recovering/Resolving]
  - Toxicity to various agents [Recovering/Resolving]
